FAERS Safety Report 6056943-9 (Version None)
Quarter: 2009Q1

REPORT INFORMATION
  Report Type: 
  Country: None (occurrence: None)
  Receive Date: 20090126
  Receipt Date: 20090107
  Transmission Date: 20090719
  Serious: Yes (Death)
  Sender: FDA-Public Use
  Company Number: B0553736A

PATIENT
  Age: 48 Year
  Sex: Male

DRUGS (5)
  1. LAMOTRIGINE          (GENERIC) [Suspect]
  2. CITALOPRAM HYDROBROMIDE [Suspect]
  3. ALPRAZOLAM [Suspect]
  4. GABAPENTIN [Suspect]
  5. ETHANOL (FORMULATION UNKNOWN) (ALCOHOL) [Suspect]

REACTIONS (1)
  - COMPLETED SUICIDE [None]
